FAERS Safety Report 7902032-5 (Version None)
Quarter: 2011Q4

REPORT INFORMATION
  Report Type: 
  Country: None (occurrence: None)
  Receive Date: 20111108
  Receipt Date: 20111028
  Transmission Date: 20120403
  Serious: Yes (Congenital Anomaly)
  Sender: FDA-Public Use
  Company Number: US-GLAXOSMITHKLINE-A0950695A

PATIENT
  Sex: Male
  Weight: 3 kg

DRUGS (3)
  1. METHYLDOPA [Concomitant]
  2. PAXIL [Suspect]
     Indication: PRODUCT USED FOR UNKNOWN INDICATION
     Dosage: 40MG UNKNOWN
     Route: 064
  3. PROZAC [Concomitant]

REACTIONS (4)
  - HERNIA CONGENITAL [None]
  - POLYDACTYLY [None]
  - ACROCHORDON [None]
  - FOETAL EXPOSURE DURING PREGNANCY [None]
